FAERS Safety Report 7064742-4 (Version None)
Quarter: 2010Q4

REPORT INFORMATION
  Report Type: 
  Country: None (occurrence: None)
  Receive Date: 20101022
  Receipt Date: 20101022
  Transmission Date: 20110411
  Serious: Yes (Hospitalization)
  Sender: FDA-Public Use
  Company Number: None

PATIENT
  Sex: Female
  Weight: 49.1 kg

DRUGS (2)
  1. FOSAMAX [Suspect]
     Indication: OSTEOPOROSIS
     Dosage: 70 MG ONCE/WK
     Dates: start: 19971101
  2. FOSAMAX [Suspect]
     Indication: OSTEOPOROSIS
     Dosage: 70 MG ONCE/WK
     Dates: start: 20100501

REACTIONS (3)
  - FALL [None]
  - FEMUR FRACTURE [None]
  - PAIN [None]
